FAERS Safety Report 8660171 (Version 2)
Quarter: 2014Q3

REPORT INFORMATION
  Report Type: Spontaneous
  Country: US (occurrence: US)
  Receive Date: 20120711
  Receipt Date: 20140717
  Transmission Date: 20150326
  Serious: Yes (Other)
  Sender: FDA-Public Use
  Company Number: US-ASTRAZENECA-2012SE45097

PATIENT
  Age: 50 Year
  Sex: Female

DRUGS (17)
  1. CYMBALTA [Concomitant]
     Active Substance: DULOXETINE HYDROCHLORIDE
  2. FLEXERIL [Concomitant]
     Active Substance: CYCLOBENZAPRINE HYDROCHLORIDE
  3. BIOTIN [Concomitant]
     Active Substance: BIOTIN
  4. LYRICA [Concomitant]
     Active Substance: PREGABALIN
  5. ALLEGRA [Concomitant]
     Active Substance: FEXOFENADINE HYDROCHLORIDE
  6. ASPIRIN. [Concomitant]
     Active Substance: ASPIRIN
  7. VITAMIN D3 [Concomitant]
     Active Substance: CHOLECALCIFEROL
  8. CALCIUM/MAGNESIUM/ZINC [Concomitant]
  9. CORDAN [Concomitant]
     Active Substance: AMIODARONE
  10. HUMIRA [Concomitant]
     Active Substance: ADALIMUMAB
  11. TRAMADOL [Concomitant]
     Active Substance: TRAMADOL
  12. LASIX [Concomitant]
     Active Substance: FUROSEMIDE
  13. COMBIVENT [Concomitant]
     Active Substance: ALBUTEROL SULFATE\IPRATROPIUM BROMIDE
  14. VECTICAL [Concomitant]
     Active Substance: CALCITRIOL
  15. NEXIUM [Suspect]
     Active Substance: ESOMEPRAZOLE MAGNESIUM
     Indication: GASTROOESOPHAGEAL REFLUX DISEASE
     Route: 048
  16. SYMBICORT [Concomitant]
     Active Substance: BUDESONIDE\FORMOTEROL FUMARATE DIHYDRATE
  17. VIT B6 [Concomitant]

REACTIONS (3)
  - Drug dose omission [Unknown]
  - Polyp [Unknown]
  - Off label use [Not Recovered/Not Resolved]
